FAERS Safety Report 23060034 (Version 1)
Quarter: 2023Q4

REPORT INFORMATION
  Report Type: Spontaneous
  Country: US (occurrence: US)
  Receive Date: 20231012
  Receipt Date: 20231012
  Transmission Date: 20240109
  Serious: Yes (Other)
  Sender: FDA-Public Use
  Company Number: US-ABBVIE-5446996

PATIENT
  Age: 19 Year
  Sex: Female
  Weight: 44 kg

DRUGS (3)
  1. INFED [Suspect]
     Active Substance: IRON DEXTRAN
     Indication: Iron deficiency anaemia
     Dosage: FORM STRENGTH: 100 MG
     Route: 042
     Dates: start: 20231006, end: 20231006
  2. XULANE [Concomitant]
     Active Substance: ETHINYL ESTRADIOL\NORELGESTROMIN
     Indication: Contraception
     Route: 062
  3. FERRIC POLYSACCHARIDE COMPLEX [Concomitant]
     Active Substance: FERRIC POLYSACCHARIDE COMPLEX
     Indication: Iron deficiency anaemia

REACTIONS (4)
  - Loss of consciousness [Recovered/Resolved]
  - Dyspnoea [Recovered/Resolved]
  - Throat tightness [Recovered/Resolved]
  - Flushing [Recovered/Resolved]

NARRATIVE: CASE EVENT DATE: 20231006
